FAERS Safety Report 4689696-7 (Version None)
Quarter: 2005Q2

REPORT INFORMATION
  Report Type: 
  Country: None (occurrence: None)
  Receive Date: 20050613
  Receipt Date: 20050613
  Transmission Date: 20051028
  Serious: Yes (Hospitalization)
  Sender: FDA-Public Use
  Company Number: None

PATIENT
  Sex: Female

DRUGS (4)
  1. GEMCITABINE [Suspect]
     Indication: PANCREATIC CARCINOMA METASTATIC
     Dosage: 900  MG/M2    INTRAVENOU
     Route: 042
     Dates: start: 20040923, end: 20050526
  2. IRINOTECAN [Suspect]
     Indication: PANCREATIC CARCINOMA METASTATIC
     Dosage: 75   MG/M2   INTRAVENOU
     Route: 042
     Dates: start: 20040923, end: 20050526
  3. ZOFRAN [Concomitant]
  4. DECADRON [Concomitant]

REACTIONS (5)
  - DIARRHOEA [None]
  - FATIGUE [None]
  - FREQUENT BOWEL MOVEMENTS [None]
  - LETHARGY [None]
  - MUSCLE SPASMS [None]
